FAERS Safety Report 6997137-X (Version None)
Quarter: 2010Q3

REPORT INFORMATION
  Report Type: 
  Country: None (occurrence: None)
  Receive Date: 20100918
  Receipt Date: 20090916
  Transmission Date: 20110219
  Serious: No
  Sender: FDA-Public Use
  Company Number: US-WYE-H11043209

PATIENT
  Sex: Male
  Weight: 118.04 kg

DRUGS (4)
  1. EFFEXOR XR [Suspect]
     Indication: ANXIETY
     Route: 048
     Dates: start: 20070101
  2. ZETIA [Concomitant]
  3. MERIDIA [Concomitant]
  4. CRESTOR [Concomitant]

REACTIONS (1)
  - DRUG SCREEN POSITIVE [None]
